FAERS Safety Report 9083062 (Version 1)
Quarter: 2013Q1

REPORT INFORMATION
  Report Type: Report from Study
  Country: US (occurrence: US)
  Receive Date: 20130130
  Receipt Date: 20130130
  Transmission Date: 20140127
  Serious: No
  Sender: FDA-Public Use
  Company Number: US-ABBOTT-12P-163-0978169-00

PATIENT
  Age: 59 Year
  Sex: Female

DRUGS (25)
  1. PROMETHAZINE [Concomitant]
     Indication: NAUSEA
     Dosage: 2-3 PER DAY
  2. ADDERALL [Concomitant]
     Indication: SLEEP DISORDER
  3. VITAMIN D [Concomitant]
     Indication: PRODUCT USED FOR UNKNOWN INDICATION
     Dosage: DAILY
  4. DEXILANT [Concomitant]
     Indication: GASTROOESOPHAGEAL REFLUX DISEASE
  5. LANTUS [Concomitant]
     Indication: PRODUCT USED FOR UNKNOWN INDICATION
  6. NOVOLOG [Concomitant]
     Indication: DIABETES MELLITUS
     Dosage: 12 WITH MEALS AND AS NEEDED
  7. PERIACTIN [Concomitant]
     Indication: GASTROINTESTINAL DISORDER
  8. HCG 22 [Concomitant]
     Indication: PAIN
     Dosage: 5000/7000 ML UNITS
     Route: 058
  9. HUMIRA [Suspect]
     Indication: IRRITABLE BOWEL SYNDROME
     Dates: start: 20111205
  10. LOVAZA [Concomitant]
     Indication: BLOOD CHOLESTEROL
     Dosage: 4 GEL TABS PER DAY
  11. APRISO [Concomitant]
     Indication: GASTROINTESTINAL DISORDER
  12. ACYCLOVIR [Concomitant]
     Indication: ANTIVIRAL PROPHYLAXIS
  13. PREMARIN [Concomitant]
     Indication: POSTMENOPAUSE
     Dosage: 3 TIMES PER WEEK
  14. COREG [Concomitant]
     Indication: BLOOD PRESSURE
  15. COREG [Concomitant]
     Indication: PALPITATIONS
  16. DOMPERIDONE [Concomitant]
     Indication: GASTROINTESTINAL MOTILITY DISORDER
     Dosage: 20MG= 2 TABLETS BEFORE EACH MEAL AND 2 TABLETS BEFORE BEDTIME
  17. SYNTHROID [Concomitant]
     Indication: THYROID DISORDER
  18. PREDNISONE [Concomitant]
     Indication: ARTHRALGIA
  19. T3 SR [Concomitant]
     Indication: THYROID DISORDER
     Dosage: AM AND NOON
  20. ZOLOFT [Concomitant]
     Indication: DEPRESSION
  21. BENICAR [Concomitant]
     Indication: BLOOD PRESSURE
     Dosage: 40/25
  22. ZOFRAN [Concomitant]
     Indication: NAUSEA
  23. ZOFRAN [Concomitant]
     Indication: VOMITING
  24. CLONAZEPAM [Concomitant]
     Indication: PRODUCT USED FOR UNKNOWN INDICATION
  25. ZANAFLEX [Concomitant]
     Indication: MUSCLE RELAXANT THERAPY
     Dosage: AT BEDTIME

REACTIONS (4)
  - Injection site haemorrhage [Unknown]
  - Drug administered in wrong device [Unknown]
  - Pain [Recovered/Resolved]
  - Injection site pain [Recovered/Resolved]
